FAERS Safety Report 10695194 (Version 1)
Quarter: 2015Q1

REPORT INFORMATION
  Report Type: Spontaneous
  Country: DK (occurrence: None)
  Receive Date: 20150106
  Receipt Date: 20150106
  Transmission Date: 20150721
  Serious: Yes (Other)
  Sender: FDA-Public Use
  Company Number: LOC-01287

PATIENT
  Age: 33 Year
  Sex: Female

DRUGS (6)
  1. LOCERYL (AMOROLFINE HYDROCHLORIDE) [Concomitant]
     Active Substance: AMOROLFINE HYDROCHLORIDE
  2. MILDISON [Suspect]
     Active Substance: HYDROCORTISONE
     Indication: ECZEMA
     Route: 003
  3. LOCOID [Suspect]
     Active Substance: HYDROCORTISONE BUTYRATE
     Indication: ECZEMA
     Dosage: CUTANEOUIS.
  4. SYMBICORT [Suspect]
     Active Substance: BUDESONIDE\FORMOTEROL FUMARATE DIHYDRATE
     Indication: ASTHMA
  5. ELIDEL [Concomitant]
     Active Substance: PIMECROLIMUS
  6. PROTOPIC [Concomitant]
     Active Substance: TACROLIMUS

REACTIONS (11)
  - Treatment noncompliance [None]
  - Eczema [None]
  - Asthma [None]
  - Dermatitis atopic [None]
  - Pruritus [None]
  - Incorrect dose administered [None]
  - Secondary adrenocortical insufficiency [None]
  - Addison^s disease [None]
  - Seasonal allergy [None]
  - Condition aggravated [None]
  - Insomnia [None]

NARRATIVE: CASE EVENT DATE: 201008
